FAERS Safety Report 17229119 (Version 1)
Quarter: 2020Q1

REPORT INFORMATION
  Report Type: Spontaneous
  Country: US (occurrence: US)
  Receive Date: 20200102
  Receipt Date: 20200102
  Transmission Date: 20200409
  Serious: Yes (Hospitalization)
  Sender: FDA-Public Use
  Company Number: None

PATIENT
  Age: 50 Year
  Sex: Female
  Weight: 101.2 kg

DRUGS (6)
  1. TRULICITY 0.75 MG [Concomitant]
     Dates: start: 20190102
  2. METFORMIN 1000 MG BID [Concomitant]
     Dates: start: 20171001
  3. CITALOPRAM 40 MG DAILY [Concomitant]
     Dates: start: 20171113
  4. LISINOPRIL 5 MG DAILY [Concomitant]
     Dates: start: 20171113
  5. INVOKANA [Suspect]
     Active Substance: CANAGLIFLOZIN
     Indication: TYPE 2 DIABETES MELLITUS
     Route: 048
     Dates: start: 20171001, end: 20200101
  6. SIMVASTATIN 20 MG DAILY [Concomitant]
     Dates: start: 20171113

REACTIONS (4)
  - Acidosis [None]
  - Anion gap increased [None]
  - Euglycaemic diabetic ketoacidosis [None]
  - Blood bicarbonate increased [None]

NARRATIVE: CASE EVENT DATE: 20191231
